FAERS Safety Report 10271208 (Version 1)
Quarter: 2014Q1

REPORT INFORMATION
  Report Type: Spontaneous
  Country: US (occurrence: None)
  Receive Date: 20140306
  Receipt Date: 20140306
  Transmission Date: 20141002
  Serious: Yes (Hospitalization)
  Sender: FDA-Public Use
  Company Number: 163-21880-13081475

PATIENT
  Age: 64 Year
  Sex: Male
  Weight: 92.53 kg

DRUGS (9)
  1. REVLIMID (LENALIDOMIDE) (20 MILLIGRAM, CAPSULES) [Suspect]
     Indication: MANTLE CELL LYMPHOMA
     Dosage: 20 MG, 21 IN 21 D, PO
     Route: 048
     Dates: start: 20130801, end: 20130805
  2. ADVAIR DISKUS [Concomitant]
  3. ALBUTEROL (SALBUTAMOL) [Concomitant]
  4. COMBIVENT (COMBIVENT) [Concomitant]
  5. DECADRON (DEXAMETHASONE) [Concomitant]
  6. LASIX (FUROSEMIDE) [Concomitant]
  7. SPIRONOLACTONE [Concomitant]
  8. ZANTAC (RANITIDINE HYDROCHLORIDE) [Concomitant]
  9. ZOFRAN (ONDANSETRON HYDROCHLORIDE) [Concomitant]

REACTIONS (3)
  - Pleural effusion [None]
  - Muscle spasms [None]
  - Full blood count decreased [None]
